FAERS Safety Report 18121960 (Version 3)
Quarter: 2020Q3

REPORT INFORMATION
  Report Type: Other
  Country: CA (occurrence: CA)
  Receive Date: 20200806
  Receipt Date: 20200917
  Transmission Date: 20201103
  Serious: Yes (Other)
  Sender: FDA-Public Use
  Company Number: CA-ROCHE-2654514

PATIENT
  Age: 18 Year
  Sex: Female

DRUGS (2)
  1. OCREVUS [Suspect]
     Active Substance: OCRELIZUMAB
     Indication: RELAPSING-REMITTING MULTIPLE SCLEROSIS
     Dosage: 300 MG AT DAY 0 AND 14, THEN 600 MG EVERY 6 MONTH
     Route: 042
     Dates: start: 20190918
  2. OCREVUS [Suspect]
     Active Substance: OCRELIZUMAB
     Route: 042

REACTIONS (4)
  - Dermatitis acneiform [Not Recovered/Not Resolved]
  - Eye infection [Not Recovered/Not Resolved]
  - Staphylococcal blepharitis [Not Recovered/Not Resolved]
  - Oral fungal infection [Recovered/Resolved]

NARRATIVE: CASE EVENT DATE: 20200904
